FAERS Safety Report 13287906 (Version 1)
Quarter: 2017Q1

REPORT INFORMATION
  Report Type: Spontaneous
  Country: ES (occurrence: ES)
  Receive Date: 20170302
  Receipt Date: 20170302
  Transmission Date: 20170428
  Serious: Yes (Other)
  Sender: FDA-Public Use
  Company Number: ES-IPCA LABORATORIES LIMITED-IPC201702-000085

PATIENT
  Age: 28 Year
  Sex: Female

DRUGS (6)
  1. ONDANSETRON [Suspect]
     Active Substance: ONDANSETRON
  2. DEXAMETHASONE. [Suspect]
     Active Substance: DEXAMETHASONE
  3. TEMOZOLOMIDE. [Suspect]
     Active Substance: TEMOZOLOMIDE
     Indication: ASTROCYTOMA
  4. LEVETIRACETAM. [Concomitant]
     Active Substance: LEVETIRACETAM
  5. ESCITALOPRAM [Suspect]
     Active Substance: ESCITALOPRAM OXALATE
  6. DEXAMETHASONE. [Concomitant]
     Active Substance: DEXAMETHASONE

REACTIONS (2)
  - Salivary gland calculus [Recovered/Resolved]
  - Sialoadenitis [Recovered/Resolved]
